FAERS Safety Report 23832025 (Version 1)
Quarter: 2024Q2

REPORT INFORMATION
  Report Type: Report from Study
  Country: CA (occurrence: CA)
  Receive Date: 20240508
  Receipt Date: 20240508
  Transmission Date: 20240716
  Serious: Yes (Other)
  Sender: FDA-Public Use
  Company Number: CA-TAKEDA-2024TUS041967

PATIENT
  Sex: Female

DRUGS (5)
  1. VEDOLIZUMAB [Suspect]
     Active Substance: VEDOLIZUMAB
     Indication: Colitis ulcerative
     Dosage: 300 MILLIGRAM
     Route: 042
     Dates: start: 20210614
  2. Salofalk [Concomitant]
     Dosage: UNK
     Dates: start: 2007
  3. PREDNISONE [Concomitant]
     Active Substance: PREDNISONE
     Dosage: UNK
     Dates: start: 20210526
  4. ALLOPURINOL [Concomitant]
     Active Substance: ALLOPURINOL
     Dosage: UNK
     Dates: start: 2019
  5. CALCIUM [Concomitant]
     Active Substance: CALCIUM
     Dosage: UNK

REACTIONS (1)
  - Bronchitis [Unknown]
